FAERS Safety Report 7556897-X (Version None)
Quarter: 2011Q2

REPORT INFORMATION
  Report Type: 
  Country: None (occurrence: None)
  Receive Date: 20110620
  Receipt Date: 20110617
  Transmission Date: 20111010
  Serious: Yes (Hospitalization, Other)
  Sender: FDA-Public Use
  Company Number: US-AMGEN-USASP2010004781

PATIENT
  Age: 68 Year
  Sex: Male
  Weight: 102.49 kg

DRUGS (26)
  1. CORTICOSTEROIDS [Suspect]
     Indication: IDIOPATHIC THROMBOCYTOPENIC PURPURA
  2. AMOXICILLIN [Concomitant]
  3. CETIRIZINE HCL [Concomitant]
  4. FOLIC ACID [Concomitant]
  5. NEULASTA [Suspect]
     Indication: CHEMOTHERAPY
     Dosage: UNK
     Dates: start: 20100101
  6. MONTELUKAST SODIUM [Concomitant]
  7. NEUPOGEN [Suspect]
     Indication: CHEMOTHERAPY
     Dosage: UNK
     Dates: start: 20090101
  8. PROCRIT [Suspect]
     Indication: ANAEMIA
     Dosage: UNK
     Dates: start: 20101115
  9. CELECOXIB [Concomitant]
     Dosage: 200 MG, UNK
  10. KEFLEX [Concomitant]
  11. PRILOSEC [Concomitant]
  12. PREDNISONE [Concomitant]
  13. ALLOPURINOL [Concomitant]
     Dosage: 300 MG, UNK
     Dates: start: 20101008
  14. VALACYCLOVIR [Concomitant]
  15. VITAMIN C                          /00008001/ [Concomitant]
  16. ALFUZOSIN HCL [Concomitant]
     Dosage: 10 MG, UNK
  17. VICODIN [Concomitant]
  18. VALTREX [Concomitant]
  19. FLUCONAZOLE [Concomitant]
  20. PREVACID [Concomitant]
  21. NPLATE [Suspect]
     Indication: IDIOPATHIC THROMBOCYTOPENIC PURPURA
     Dosage: 600 A?G, QWK
     Route: 058
     Dates: start: 20100401, end: 20110204
  22. PROMETHAZINE [Concomitant]
     Dosage: 25 MG, UNK
  23. LEUKERAN [Concomitant]
  24. FLUNISOLIDE [Concomitant]
  25. HYDROCODONE [Concomitant]
  26. LEVAQUIN [Concomitant]

REACTIONS (21)
  - THROMBOCYTOPENIA [None]
  - URINARY HESITATION [None]
  - VOLVULUS [None]
  - INFLUENZA LIKE ILLNESS [None]
  - DEVICE RELATED SEPSIS [None]
  - LYMPHOMA [None]
  - URINARY TRACT OBSTRUCTION [None]
  - HYPOKALAEMIA [None]
  - NEOPLASM MALIGNANT [None]
  - SEPTIC SHOCK [None]
  - BENIGN PROSTATIC HYPERPLASIA [None]
  - PETECHIAE [None]
  - FATIGUE [None]
  - ANAEMIA [None]
  - PSEUDOHYPERKALAEMIA [None]
  - HAEMATOLOGICAL MALIGNANCY [None]
  - PURPURA [None]
  - ASTHENIA [None]
  - LEUKOCYTOSIS [None]
  - ENTEROCOLITIS INFECTIOUS [None]
  - BONE MARROW FAILURE [None]
